FAERS Safety Report 4512580-6 (Version None)
Quarter: 2004Q4

REPORT INFORMATION
  Report Type: 
  Country: None (occurrence: None)
  Receive Date: 20041129
  Receipt Date: 20041019
  Transmission Date: 20050328
  Serious: Yes (Hospitalization)
  Sender: FDA-Public Use
  Company Number: CN-MERCK-0410CHN00038

PATIENT
  Age: 40 Year
  Sex: Female

DRUGS (1)
  1. VIOXX [Suspect]
     Indication: MONARTHRITIS
     Route: 048
     Dates: start: 20040612, end: 20040701

REACTIONS (11)
  - ANAL INFLAMMATION [None]
  - ARTERIAL RUPTURE [None]
  - CHEST PAIN [None]
  - CHOLECYSTITIS [None]
  - GASTROINTESTINAL HAEMORRHAGE [None]
  - GASTROINTESTINAL ULCER [None]
  - HAEMOGLOBIN DECREASED [None]
  - HEADACHE [None]
  - MOUTH ULCERATION [None]
  - PROCTITIS [None]
  - TONGUE ULCERATION [None]
